FAERS Safety Report 8500260-1 (Version None)
Quarter: 2012Q3

REPORT INFORMATION
  Report Type: 
  Country: None (occurrence: None)
  Receive Date: 20120710
  Receipt Date: 20120705
  Transmission Date: 20120928
  Serious: Yes (Other)
  Sender: FDA-Public Use
  Company Number: US-PFIZER INC-2012162625

PATIENT
  Sex: Male
  Weight: 99.773 kg

DRUGS (3)
  1. LIPITOR [Suspect]
     Indication: BLOOD CHOLESTEROL INCREASED
     Dosage: 20 MG, DAILY
     Route: 048
  2. AMITRIPTYLINE [Concomitant]
     Indication: SLEEP DISORDER
     Dosage: 150 MG, DAILY
  3. VIAGRA [Concomitant]
     Dosage: UNK
     Dates: start: 20110101

REACTIONS (4)
  - JOINT SWELLING [None]
  - ARTHRALGIA [None]
  - JOINT INJURY [None]
  - ARTHROPATHY [None]
